FAERS Safety Report 23213345 (Version 1)
Quarter: 2023Q4

REPORT INFORMATION
  Report Type: Spontaneous
  Country: SE (occurrence: SE)
  Receive Date: 20231121
  Receipt Date: 20231121
  Transmission Date: 20240110
  Serious: Yes (Other)
  Sender: FDA-Public Use
  Company Number: None

PATIENT
  Age: 39 Year
  Sex: Male

DRUGS (5)
  1. DULOXETINE [Suspect]
     Active Substance: DULOXETINE
     Indication: Product used for unknown indication
     Dates: start: 20231016
  2. Aritonin [Concomitant]
     Indication: Product used for unknown indication
     Dates: start: 20230717
  3. LISDEXAMFETAMINE DIMESYLATE [Concomitant]
     Active Substance: LISDEXAMFETAMINE DIMESYLATE
     Indication: Product used for unknown indication
     Dosage: 20 + 60 MG
     Dates: start: 20230815
  4. INTUNIV [Concomitant]
     Active Substance: GUANFACINE HYDROCHLORIDE
     Indication: Product used for unknown indication
     Dosage: FOR ACTIVE INGREDIENT GUANFACINE THE STRENGTH IS 2 MILLIGRAMS.?FOR ACTIVE INGREDIENT GUANFACINE HYDR
     Dates: start: 20231011
  5. PHENYLPROPANOLAMINE [Concomitant]
     Active Substance: PHENYLPROPANOLAMINE
     Indication: Product used for unknown indication
     Dosage: FOR ACTIVE INGREDIENT PHENYLPROPANOLAMINE HYDROCHLORIDE THE STRENGTH IS 50 MILLIGRAMS.?FOR ACTIVE IN
     Dates: start: 20200309

REACTIONS (8)
  - Erectile dysfunction [Unknown]
  - Chest discomfort [Not Recovered/Not Resolved]
  - Constipation [Not Recovered/Not Resolved]
  - Asthenia [Unknown]
  - Rash [Not Recovered/Not Resolved]
  - Depressed mood [Not Recovered/Not Resolved]
  - Hypoaesthesia [Unknown]
  - Muscle twitching [Not Recovered/Not Resolved]

NARRATIVE: CASE EVENT DATE: 20231001
